FAERS Safety Report 4376988-4 (Version None)
Quarter: 2004Q2

REPORT INFORMATION
  Report Type: 
  Country: None (occurrence: None)
  Receive Date: 20040614
  Receipt Date: 20031121
  Transmission Date: 20050107
  Serious: Yes (Hospitalization, Disabling)
  Sender: FDA-Public Use
  Company Number: US-MERCK-0311USA02523

PATIENT
  Age: 48 Year
  Sex: Male

DRUGS (3)
  1. TOPROL-XL [Concomitant]
     Indication: HYPERTENSION
     Route: 065
     Dates: start: 20020101
  2. VIOXX [Suspect]
     Indication: PAIN IN EXTREMITY
     Route: 048
     Dates: start: 20020201, end: 20020824
  3. VIOXX [Suspect]
     Indication: FLAT FEET
     Route: 048
     Dates: start: 20020201, end: 20020824

REACTIONS (5)
  - BLOOD CHOLESTEROL INCREASED [None]
  - CAROTID ARTERY DISEASE [None]
  - DEPRESSION [None]
  - FEAR [None]
  - MYOCARDIAL INFARCTION [None]
